FAERS Safety Report 6530651-X (Version None)
Quarter: 2010Q1

REPORT INFORMATION
  Report Type: 
  Country: None (occurrence: None)
  Receive Date: 20100108
  Receipt Date: 20091229
  Transmission Date: 20100710
  Serious: Yes (Hospitalization)
  Sender: FDA-Public Use
  Company Number: FR-BRACCO-000342

PATIENT
  Age: 73 Year
  Sex: Female

DRUGS (15)
  1. IOPAMIDOL [Suspect]
     Indication: ARTHROGRAM
     Route: 037
     Dates: start: 20091008, end: 20091008
  2. CALCIUM D3 [Concomitant]
     Dosage: MORNING
     Route: 048
     Dates: start: 20010101
  3. SMECTA [Concomitant]
     Dosage: IF NEEDED
     Route: 048
     Dates: start: 20091106, end: 20091107
  4. ACTONEL [Concomitant]
     Route: 048
     Dates: start: 20010101, end: 20091105
  5. COUGH AND COLD PREPARATIONS [Concomitant]
     Route: 065
  6. DIPROSONE [Concomitant]
     Dosage: IN THE EVENING
     Route: 003
     Dates: start: 20091106, end: 20091109
  7. DAFALGAN [Concomitant]
     Dosage: IF NEEDED
     Route: 048
     Dates: start: 20050101, end: 20091105
  8. STILNOX [Concomitant]
     Dosage: BEFORE SLEEPING
     Route: 048
     Dates: start: 20030101
  9. EFFEXOR [Concomitant]
     Dosage: MORNING
     Route: 048
     Dates: start: 20090801
  10. APROVEL [Concomitant]
     Dosage: MORNING
     Route: 048
     Dates: start: 20000101
  11. ATARAX [Concomitant]
     Dosage: 1 MORNING, 2 EVENING
     Route: 048
     Dates: start: 20091001, end: 20091112
  12. AERIUS [Concomitant]
     Route: 065
     Dates: start: 20091001
  13. HYDROCORTANCYL [Concomitant]
     Route: 065
     Dates: start: 20091008, end: 20091008
  14. GLOSSITHIASE [Concomitant]
     Dosage: IF NEEDED
     Route: 048
     Dates: start: 20091107, end: 20091111
  15. CONTRAMAL [Concomitant]
     Route: 048
     Dates: start: 20030101, end: 20091105

REACTIONS (4)
  - PRURITUS [None]
  - RASH MACULO-PAPULAR [None]
  - URTICARIA [None]
  - VAGINAL LESION [None]
